FAERS Safety Report 4487575-1 (Version None)
Quarter: 2004Q4

REPORT INFORMATION
  Report Type: 
  Country: None (occurrence: None)
  Receive Date: 20041027
  Receipt Date: 20041027
  Transmission Date: 20050328
  Serious: Yes (Hospitalization)
  Sender: FDA-Public Use
  Company Number: None

PATIENT
  Age: 79 Year
  Sex: Male

DRUGS (2)
  1. AMPHOTERICIN B [Suspect]
     Indication: MEDICATION ERROR
     Dosage: ONE TIME DOSE IV
     Route: 042
     Dates: start: 20040528, end: 20040528
  2. TEQUIN [Suspect]

REACTIONS (6)
  - BRONCHOSTENOSIS [None]
  - CHILLS [None]
  - HYPERTENSION [None]
  - MEDICATION ERROR [None]
  - TACHYCARDIA [None]
  - TRACHEAL STENOSIS [None]
